FAERS Safety Report 12687247 (Version 2)
Quarter: 2017Q1

REPORT INFORMATION
  Report Type: Spontaneous
  Country: JP (occurrence: JP)
  Receive Date: 20160826
  Receipt Date: 20170221
  Transmission Date: 20170428
  Serious: Yes (Other)
  Sender: FDA-Public Use
  Company Number: JP-BAUSCH-BL-2016-020541

PATIENT
  Age: 13 Year
  Sex: Male
  Weight: 43 kg

DRUGS (3)
  1. PREDNISOLONE. [Concomitant]
     Active Substance: PREDNISOLONE
     Indication: COLITIS ULCERATIVE
  2. CYCLOSPORINE. [Concomitant]
     Active Substance: CYCLOSPORINE
     Indication: COLITIS ULCERATIVE
     Route: 041
  3. MESALAZINE [Suspect]
     Active Substance: MESALAMINE
     Indication: COLITIS ULCERATIVE
     Route: 048

REACTIONS (5)
  - Pyrexia [Recovered/Resolved]
  - Pancreatitis [Unknown]
  - Drug hypersensitivity [Unknown]
  - Diarrhoea haemorrhagic [Recovered/Resolved]
  - Abdominal pain [Recovered/Resolved]
